FAERS Safety Report 8437445-9 (Version None)
Quarter: 2012Q2

REPORT INFORMATION
  Report Type: 
  Country: None (occurrence: None)
  Receive Date: 20120614
  Receipt Date: 20120322
  Transmission Date: 20120825
  Serious: No
  Sender: FDA-Public Use
  Company Number: US-AMGEN-USASP2010004119

PATIENT
  Age: 61 Year
  Sex: Female

DRUGS (7)
  1. PROLIA [Suspect]
     Indication: OSTEOPOROSIS POSTMENOPAUSAL
     Dosage: 60 MG, Q6MO
     Dates: start: 20100913
  2. VITAMIN B COMPLEX CAP [Concomitant]
  3. VITAMIN D [Concomitant]
     Dosage: 50000 IU, QWK
     Route: 048
  4. PRAVASTATIN [Concomitant]
     Dosage: 40 MG, QD
  5. COQ10 [Concomitant]
  6. CALCIUM WITH VITAMIN D [Concomitant]
     Dosage: UNK
  7. VITAMIN K TAB [Concomitant]
     Dosage: UNK

REACTIONS (2)
  - TOOTH DISORDER [None]
  - RASH PUSTULAR [None]
